FAERS Safety Report 7057041-8 (Version None)
Quarter: 2010Q4

REPORT INFORMATION
  Report Type: 
  Country: None (occurrence: None)
  Receive Date: 20101022
  Receipt Date: 20101004
  Transmission Date: 20110411
  Serious: Yes (Hospitalization)
  Sender: FDA-Public Use
  Company Number: US-BAYER-201030646NA

PATIENT
  Age: 21 Year
  Sex: Female
  Weight: 52 kg

DRUGS (7)
  1. YAZ [Suspect]
     Indication: CONTRACEPTION
     Route: 048
     Dates: start: 20080401, end: 20080601
  2. YASMIN [Suspect]
     Indication: PRODUCT USED FOR UNKNOWN INDICATION
     Route: 048
     Dates: start: 20080401, end: 20080601
  3. DROSPIRENONE AND ETHINYL ESTRADIOL [Suspect]
     Indication: PRODUCT USED FOR UNKNOWN INDICATION
     Route: 048
     Dates: start: 20080401, end: 20080601
  4. JUNELL [Concomitant]
     Indication: CONTRACEPTION
     Dates: start: 20080601
  5. MICROGESTIN 1.5/30 [Concomitant]
     Dates: start: 20081001
  6. LEVORA 0.15/30-21 [Concomitant]
     Dates: start: 20070323
  7. AMITRIPTYLINE HYDROCHLORIDE [Concomitant]
     Dates: start: 20070323

REACTIONS (1)
  - GALLBLADDER INJURY [None]
